FAERS Safety Report 12697494 (Version 3)
Quarter: 2016Q4

REPORT INFORMATION
  Report Type: Spontaneous
  Country: US (occurrence: US)
  Receive Date: 20160830
  Receipt Date: 20161031
  Transmission Date: 20170207
  Serious: No
  Sender: FDA-Public Use
  Company Number: US-PFIZER INC-2016323128

PATIENT
  Age: 58 Year
  Sex: Male

DRUGS (15)
  1. LOSARTAN POTASSIUM. [Concomitant]
     Active Substance: LOSARTAN POTASSIUM
     Indication: HYPERTENSION
     Dosage: 50 MG, DAILY
     Route: 048
     Dates: start: 20130916
  2. METOPROLOL TARTRATE. [Concomitant]
     Active Substance: METOPROLOL TARTRATE
     Indication: HYPERTENSION
     Dosage: 50 MG, 2X/DAY
     Dates: start: 20151217
  3. FERROUS SULFATE. [Concomitant]
     Active Substance: FERROUS SULFATE
     Indication: MINERAL SUPPLEMENTATION
     Dosage: 325 MG, 2X/DAY
     Route: 048
     Dates: start: 20160324
  4. LIPITOR [Concomitant]
     Active Substance: ATORVASTATIN CALCIUM
     Indication: BLOOD CHOLESTEROL
     Dosage: 20 MG, DAILY
     Route: 048
     Dates: start: 20130916
  5. LEVEMIR [Concomitant]
     Active Substance: INSULIN DETEMIR
     Indication: DIABETES MELLITUS
     Dosage: 20 IU, 2X/DAY (TAKE 20 UNITS BY SUB-Q INJECTION)
     Route: 058
     Dates: start: 20140801
  6. NOVOLOG [Concomitant]
     Active Substance: INSULIN ASPART
     Dosage: 15 IU, UNK (TAKE 15 UNITS BY SUB-Q INJECTION WITH EACH MEAL)
     Route: 058
     Dates: start: 20140801
  7. LATANOPROST. [Concomitant]
     Active Substance: LATANOPROST
     Dosage: 1 GTT, DAILY (TAKE 1 GTT DAILY INTO BOTH EYES IN THE EVENING)
     Dates: start: 20160421
  8. LASIX [Concomitant]
     Active Substance: FUROSEMIDE
     Indication: SWELLING
  9. LYRICA [Suspect]
     Active Substance: PREGABALIN
     Indication: NEURALGIA
     Dosage: 100 MG, 3X/DAY
     Route: 048
     Dates: start: 20130109
  10. CHOLECALCIFEROL [Concomitant]
     Active Substance: CHOLECALCIFEROL
     Indication: VITAMIN D DEFICIENCY
     Dosage: 2000 IU, DAILY
     Route: 048
     Dates: start: 20130916
  11. DOCUSATE SODIUM. [Concomitant]
     Active Substance: DOCUSATE SODIUM
     Indication: CONSTIPATION
     Dosage: 100 MG, AS NEEDED (TWICE DAILY AS NEEDED)
     Route: 048
     Dates: start: 20150813
  12. ACETYLSALICYLIC ACID [Concomitant]
     Active Substance: ASPIRIN
     Dosage: 81 MG, DAILY
     Route: 048
     Dates: start: 20130916
  13. LASIX [Concomitant]
     Active Substance: FUROSEMIDE
     Indication: HYPERTENSION
     Dosage: 40 MG, DAILY
     Dates: start: 20130916
  14. DORZOLAMIDE HCL-TIMOLOL MALEATE [Concomitant]
     Dosage: 1 GTT, 2X/DAY (DORZOLAMIDE HYDROCHLORIDE-22.3/TIMOLOL MALEATE-6.8 MG/ML)
     Dates: start: 20160421
  15. BRIMONIDINE TARTRATE. [Concomitant]
     Active Substance: BRIMONIDINE TARTRATE
     Dosage: 1 GTT, 2X/DAY (TAKE 1 GTT TWICE DAILY INTO EACH EYE)
     Dates: start: 20160421

REACTIONS (2)
  - Diabetic neuropathy [Recovered/Resolved]
  - Paraesthesia [Recovered/Resolved]
